FAERS Safety Report 6806195-4 (Version None)
Quarter: 2010Q2

REPORT INFORMATION
  Report Type: 
  Country: None (occurrence: None)
  Receive Date: 20100629
  Receipt Date: 20100628
  Transmission Date: 20101027
  Serious: Yes (Other)
  Sender: FDA-Public Use
  Company Number: IT-MERCK-1006ITA00057

PATIENT
  Age: 45 Year
  Sex: Female

DRUGS (2)
  1. HYZAAR [Suspect]
     Indication: HYPERTENSION
     Route: 048
     Dates: start: 20091001
  2. HYZAAR [Suspect]
     Route: 048
     Dates: end: 20100409

REACTIONS (1)
  - APHONIA [None]
